FAERS Safety Report 17571742 (Version 1)
Quarter: 2020Q1

REPORT INFORMATION
  Report Type: Spontaneous
  Country: US (occurrence: US)
  Receive Date: 20200317
  Receipt Date: 20200317
  Transmission Date: 20200409
  Serious: No
  Sender: FDA-Public Use
  Company Number: None

PATIENT
  Age: 62 Year
  Sex: Female

DRUGS (1)
  1. REPATHA [Suspect]
     Active Substance: EVOLOCUMAB
     Dosage: DOSE: 140?FREQUENCY: OTHER
     Route: 058
     Dates: start: 201904

REACTIONS (2)
  - Blood glucose increased [None]
  - Therapy cessation [None]

NARRATIVE: CASE EVENT DATE: 20200317
